FAERS Safety Report 8456144-0 (Version None)
Quarter: 2012Q2

REPORT INFORMATION
  Report Type: 
  Country: None (occurrence: None)
  Receive Date: 20120621
  Receipt Date: 20120620
  Transmission Date: 20120825
  Serious: Yes (Other)
  Sender: FDA-Public Use
  Company Number: PHHY2012NL050126

PATIENT
  Sex: Female

DRUGS (4)
  1. ZOMETA [Suspect]
     Dosage: 4 MG/100 ML 1X PER 28 DAYS (PERIPHERAL AT 320 ML/H)
     Dates: start: 20120611
  2. ZOMETA [Suspect]
     Dosage: 4 MG/100 ML 1X PER 28 DAYS (PERIPHERAL AT 320 ML/H)
     Dates: start: 20120501
  3. ZOMETA [Suspect]
     Dosage: 4 MG/100 ML 1X PER 28 DAYS (PERIPHERAL AT 320 ML/H)
     Dates: start: 20120307
  4. ZOMETA [Suspect]
     Indication: LUNG CANCER METASTATIC
     Dosage: 4 MG/100 ML 1X PER 28 DAYS (PERIPHERAL AT 320 ML/H)

REACTIONS (6)
  - TERMINAL STATE [None]
  - PALLOR [None]
  - DECREASED APPETITE [None]
  - ASTHENIA [None]
  - BONE PAIN [None]
  - FATIGUE [None]
